FAERS Safety Report 10414667 (Version 1)
Quarter: 2014Q3

REPORT INFORMATION
  Report Type: Spontaneous
  Country: FR (occurrence: FR)
  Receive Date: 20140828
  Receipt Date: 20140828
  Transmission Date: 20150326
  Serious: Yes (Hospitalization)
  Sender: FDA-Public Use
  Company Number: FR-BRISTOL-MYERS SQUIBB COMPANY-21331632

PATIENT
  Age: 22 Year
  Sex: Male

DRUGS (4)
  1. KREDEX [Concomitant]
     Active Substance: CARVEDILOL
  2. COUMADIN [Suspect]
     Active Substance: WARFARIN SODIUM
     Indication: HEART DISEASE CONGENITAL
     Dosage: 7.5MG:22-MAY-29MAY?REINTRODUCED WITH 5MG ON 29MAY2014 AND 7.5MG ON 31JUL2014.
     Route: 048
     Dates: start: 20140522
  3. LOVENOX [Suspect]
     Active Substance: ENOXAPARIN SODIUM
     Indication: CEREBROVASCULAR ACCIDENT
     Route: 048
     Dates: start: 20140522
  4. CO-RENITEC [Concomitant]
     Active Substance: ENALAPRIL\HYDROCHLOROTHIAZIDE

REACTIONS (3)
  - Haemorrhage [Unknown]
  - Inguinal hernia [Unknown]
  - Haematoma [Unknown]

NARRATIVE: CASE EVENT DATE: 20140528
